FAERS Safety Report 4965323-6 (Version None)
Quarter: 2006Q2

REPORT INFORMATION
  Report Type: 
  Country: None (occurrence: None)
  Receive Date: 20060406
  Receipt Date: 20051019
  Transmission Date: 20061013
  Serious: Yes (Hospitalization, Disabling)
  Sender: FDA-Public Use
  Company Number: US-MERCK-0510USA08256

PATIENT
  Age: 40 Year
  Sex: Male
  Weight: 120 kg

DRUGS (9)
  1. VIOXX [Suspect]
     Indication: ARTHRITIS
     Route: 048
     Dates: start: 19991001, end: 20000601
  2. VIOXX [Suspect]
     Route: 048
     Dates: start: 20040101, end: 20040701
  3. VIOXX [Suspect]
     Indication: PAIN
     Route: 048
     Dates: start: 19991001, end: 20000601
  4. VIOXX [Suspect]
     Route: 048
     Dates: start: 20040101, end: 20040701
  5. ALLOPURINOL [Concomitant]
     Indication: PAIN
     Route: 065
     Dates: start: 20030201
  6. CELEBREX [Concomitant]
     Indication: PAIN
     Route: 065
     Dates: start: 20000101, end: 20010101
  7. COLCHICINE [Concomitant]
     Indication: PAIN
     Route: 065
     Dates: start: 20040101
  8. HYDRALAZINE [Concomitant]
     Indication: HYPERTENSION
     Route: 065
     Dates: start: 20000101
  9. INDERAL [Concomitant]
     Indication: HYPERTENSION
     Route: 065
     Dates: start: 20020101

REACTIONS (5)
  - BACK DISORDER [None]
  - CARDIAC DISORDER [None]
  - CEREBROVASCULAR ACCIDENT [None]
  - HEADACHE [None]
  - HERNIA [None]
